FAERS Safety Report 14880924 (Version 1)
Quarter: 2018Q2

REPORT INFORMATION
  Report Type: Spontaneous
  Country: US (occurrence: US)
  Receive Date: 20180425
  Receipt Date: 20180425
  Transmission Date: 20180711
  Serious: No
  Sender: FDA-Public Use
  Company Number: None

PATIENT
  Age: 67 Year
  Sex: Female
  Weight: 72.12 kg

DRUGS (6)
  1. VITAMIN C [Concomitant]
     Active Substance: ASCORBIC ACID
  2. COD LIVER OIL [Concomitant]
     Active Substance: COD LIVER OIL
  3. LISINOPRIL 10MG TABLETS [Suspect]
     Active Substance: LISINOPRIL
     Indication: HYPERTENSION
     Dosage: ?          QUANTITY:30 1/2 TABLET ONLY;?
     Route: 048
     Dates: start: 20180213, end: 20180420
  4. CENTRIUM VIT [Concomitant]
  5. ALEVE [Concomitant]
     Active Substance: NAPROXEN SODIUM
  6. VITAMIN D [Concomitant]
     Active Substance: CHOLECALCIFEROL

REACTIONS (5)
  - Stomatitis [None]
  - Cough [None]
  - Insomnia [None]
  - Nasopharyngitis [None]
  - Decreased appetite [None]

NARRATIVE: CASE EVENT DATE: 20180217
